FAERS Safety Report 15689569 (Version 1)
Quarter: 2018Q4

REPORT INFORMATION
  Report Type: Spontaneous
  Country: US (occurrence: US)
  Receive Date: 20181205
  Receipt Date: 20181205
  Transmission Date: 20190205
  Serious: No
  Sender: FDA-Public Use
  Company Number: US-GLAXOSMITHKLINE-US2018216796

PATIENT
  Sex: Female

DRUGS (1)
  1. LAMICTAL [Suspect]
     Active Substance: LAMOTRIGINE
     Indication: TRIGEMINAL NEURALGIA
     Dosage: 125 MG, BID
     Dates: start: 2003

REACTIONS (6)
  - Dizziness [Not Recovered/Not Resolved]
  - Dysphagia [Not Recovered/Not Resolved]
  - Fall [Not Recovered/Not Resolved]
  - Amnesia [Not Recovered/Not Resolved]
  - Hypoaesthesia [Not Recovered/Not Resolved]
  - Ataxia [Not Recovered/Not Resolved]
